FAERS Safety Report 6826074-6 (Version None)
Quarter: 2010Q3

REPORT INFORMATION
  Report Type: 
  Country: None (occurrence: None)
  Receive Date: 20100709
  Receipt Date: 20100702
  Transmission Date: 20110219
  Serious: Yes (Hospitalization)
  Sender: FDA-Public Use
  Company Number: GB-ASTRAZENECA-2010SE31070

PATIENT
  Age: 59 Year
  Sex: Female

DRUGS (4)
  1. ROSUVASTATIN [Suspect]
     Indication: BLOOD CHOLESTEROL INCREASED
     Route: 048
     Dates: start: 20100602
  2. ROSUVASTATIN [Suspect]
     Route: 048
  3. CIPROFLOXACIN [Concomitant]
     Dates: start: 20100317
  4. PERINDOPRIL ERBUMINE [Concomitant]

REACTIONS (2)
  - DIZZINESS [None]
  - VERTIGO [None]
